FAERS Safety Report 12812275 (Version 2)
Quarter: 2017Q1

REPORT INFORMATION
  Report Type: Spontaneous
  Country: FR (occurrence: FR)
  Receive Date: 20161005
  Receipt Date: 20170123
  Transmission Date: 20170428
  Serious: Yes (Other)
  Sender: FDA-Public Use
  Company Number: PHHY2016FR136132

PATIENT
  Sex: Female
  Weight: 60 kg

DRUGS (7)
  1. ZOPHREN [Suspect]
     Active Substance: ONDANSETRON
     Indication: CHEMOTHERAPY
     Dosage: 8 MG, BID
     Route: 048
     Dates: start: 20160826
  2. NEULASTA [Concomitant]
     Active Substance: PEGFILGRASTIM
     Indication: NEUTROPENIA
     Dosage: 6 MG, QMO
     Route: 058
     Dates: start: 20160826
  3. MOVICOL [Concomitant]
     Active Substance: POLYETHYLENE GLYCOL 3350\POTASSIUM CHLORIDE\SODIUM BICARBONATE\SODIUM CHLORIDE
     Indication: PRODUCT USED FOR UNKNOWN INDICATION
     Dosage: UNK UNK, QD
     Route: 048
  4. ATACAND [Concomitant]
     Active Substance: CANDESARTAN CILEXETIL
     Indication: PRODUCT USED FOR UNKNOWN INDICATION
     Dosage: 8 MG, QD
     Route: 048
  5. HEXAQUINE [Concomitant]
     Active Substance: NIAOULI OIL\QUININE BENZOATE\THIAMINE HYDROCHLORIDE
     Indication: PRODUCT USED FOR UNKNOWN INDICATION
     Dosage: UNK UNK, PRN
     Route: 065
  6. CRESTOR [Concomitant]
     Active Substance: ROSUVASTATIN CALCIUM
     Indication: PRODUCT USED FOR UNKNOWN INDICATION
     Dosage: 5 MG, QD
     Route: 048
  7. SETOFILM [Suspect]
     Active Substance: ONDANSETRON
     Indication: CHEMOTHERAPY
     Dosage: 8 MG, UNK
     Route: 048

REACTIONS (1)
  - Abdominal pain [Recovered/Resolved]
